FAERS Safety Report 14677497 (Version 1)
Quarter: 2018Q1

REPORT INFORMATION
  Report Type: Spontaneous
  Country: GB (occurrence: GB)
  Receive Date: 20180325
  Receipt Date: 20180325
  Transmission Date: 20180509
  Serious: Yes (Other)
  Sender: FDA-Public Use
  Company Number: GB-MYLANLABS-2018M1017429

PATIENT
  Age: 75 Year
  Sex: Male
  Weight: 71 kg

DRUGS (4)
  1. COCODAMOL [Concomitant]
     Active Substance: ACETAMINOPHEN\CODEINE PHOSPHATE
     Indication: PRODUCT USED FOR UNKNOWN INDICATION
     Dosage: ONE OR TWO TO BE TAKEN FOUR TIMES A DAY
  2. HYPROMELLOSE [Concomitant]
     Active Substance: HYPROMELLOSES
     Indication: PRODUCT USED FOR UNKNOWN INDICATION
     Dosage: 1 GTT, UNK
     Dates: start: 20170731
  3. SIMVASTATIN. [Suspect]
     Active Substance: SIMVASTATIN
     Indication: PRODUCT USED FOR UNKNOWN INDICATION
     Dosage: 40 MG, UNK
  4. FENBID [Concomitant]
     Active Substance: IBUPROFEN
     Indication: PRODUCT USED FOR UNKNOWN INDICATION
     Dosage: APPLY TO AFFECTED AREA(S) THREE TIMES DAILY WHE...
     Dates: start: 20170731

REACTIONS (1)
  - Musculoskeletal stiffness [Recovered/Resolved]

NARRATIVE: CASE EVENT DATE: 20180129
